FAERS Safety Report 5492407-9 (Version None)
Quarter: 2007Q4

REPORT INFORMATION
  Report Type: 
  Country: None (occurrence: None)
  Receive Date: 20071022
  Receipt Date: 20071011
  Transmission Date: 20080405
  Serious: Yes (Life-Threatening)
  Sender: FDA-Public Use
  Company Number: DE-AMGEN-UK247850

PATIENT

DRUGS (9)
  1. ARANESP [Suspect]
     Indication: DRUG USE FOR UNKNOWN INDICATION
     Route: 058
     Dates: start: 20070917, end: 20071008
  2. CYCLOPHOSPHAMIDE [Suspect]
     Route: 042
     Dates: start: 20070917, end: 20071008
  3. EPIRUBICIN [Suspect]
     Route: 042
     Dates: start: 20070917, end: 20071008
  4. FLUOROURACIL [Suspect]
     Route: 042
     Dates: start: 20070917, end: 20071008
  5. NEBILET [Concomitant]
     Route: 065
  6. ATACAND HCT [Concomitant]
     Route: 065
  7. ASPIRIN [Concomitant]
     Route: 065
  8. CHOLESTYRAMINE [Concomitant]
     Route: 065
  9. LEVOTHYROXINE SODIUM [Concomitant]
     Route: 065

REACTIONS (2)
  - LEUKOPENIA [None]
  - NEUTROPENIA [None]
